FAERS Safety Report 4775523-6 (Version None)
Quarter: 2005Q3

REPORT INFORMATION
  Report Type: 
  Country: None (occurrence: None)
  Receive Date: 20050922
  Receipt Date: 20050912
  Transmission Date: 20060218
  Serious: Yes (Death)
  Sender: FDA-Public Use
  Company Number: US-JNJFOC-20040103200

PATIENT
  Sex: Female

DRUGS (1)
  1. INFLIXIMAB [Suspect]
     Indication: RHEUMATOID ARTHRITIS
     Route: 042
     Dates: start: 19991124, end: 20010901

REACTIONS (3)
  - BRAIN NEOPLASM MALIGNANT [None]
  - OESOPHAGEAL CARCINOMA [None]
  - PHARYNGEAL CANCER STAGE UNSPECIFIED [None]
